FAERS Safety Report 6686189-2 (Version None)
Quarter: 2010Q2

REPORT INFORMATION
  Report Type: 
  Country: None (occurrence: None)
  Receive Date: 20100419
  Receipt Date: 20100416
  Transmission Date: 20101027
  Serious: Yes (Death, Life-Threatening)
  Sender: FDA-Public Use
  Company Number: PHHO2010ES02377

PATIENT
  Sex: Male
  Weight: 83.7 kg

DRUGS (3)
  1. LBH589 LBH+CAP [Suspect]
     Indication: ACUTE MYELOID LEUKAEMIA
     Dosage: 20 MG, 3 TIMES A WEEK
     Route: 048
     Dates: start: 20100202
  2. CYTARABINE [Suspect]
     Indication: ACUTE MYELOID LEUKAEMIA
     Dosage: 100 MG/M2, UNK
     Dates: start: 20100125, end: 20100201
  3. IDARUBICIN HCL [Suspect]
     Indication: ACUTE MYELOID LEUKAEMIA
     Dosage: 8 MG/M2, UNK
     Dates: start: 20100125, end: 20100127

REACTIONS (5)
  - HAEMODYNAMIC INSTABILITY [None]
  - NEUTROPENIA [None]
  - PYREXIA [None]
  - RENAL IMPAIRMENT [None]
  - SEPTIC SHOCK [None]
